FAERS Safety Report 6916560-2 (Version None)
Quarter: 2010Q3

REPORT INFORMATION
  Report Type: 
  Country: None (occurrence: None)
  Receive Date: 20100810
  Receipt Date: 20100730
  Transmission Date: 20110219
  Serious: Yes (Hospitalization, Other)
  Sender: FDA-Public Use
  Company Number: US-AMGEN-QUU404105

PATIENT
  Sex: Male

DRUGS (16)
  1. ENBREL [Suspect]
     Indication: RHEUMATOID ARTHRITIS
     Route: 058
     Dates: start: 20070501
  2. FISH OIL [Concomitant]
     Dates: start: 20070501
  3. METHOTREXATE [Concomitant]
     Dates: start: 20061101
  4. CRESTOR [Concomitant]
     Dates: start: 20070501
  5. METOPROLOL [Concomitant]
     Dates: start: 20081201
  6. PREDNISONE [Concomitant]
     Dates: start: 20030801
  7. LUNESTA [Concomitant]
     Dates: start: 20060901
  8. ACTONEL [Concomitant]
     Dates: start: 20080901
  9. PLAVIX [Concomitant]
     Dates: start: 20070501
  10. QUINAPRIL [Concomitant]
     Dates: start: 20070501
  11. ASPIRIN [Concomitant]
     Dates: start: 20030401
  12. NITROGLYCERIN [Concomitant]
     Route: 060
     Dates: start: 20070501
  13. AMLODIPINE [Concomitant]
  14. ATACAND [Concomitant]
  15. CALCIUM/VITAMIN D [Concomitant]
  16. MULTI-VITAMINS [Concomitant]

REACTIONS (15)
  - ANGINA UNSTABLE [None]
  - BRADYCARDIA [None]
  - CARDIOMYOPATHY [None]
  - CORONARY ARTERY DISEASE [None]
  - HYPERLIPIDAEMIA [None]
  - INSOMNIA [None]
  - MITRAL VALVE INCOMPETENCE [None]
  - MUSCULAR WEAKNESS [None]
  - MUSCULOSKELETAL PAIN [None]
  - MYALGIA [None]
  - MYOCARDIAL INFARCTION [None]
  - PAIN [None]
  - PAIN IN EXTREMITY [None]
  - RHEUMATOID ARTHRITIS [None]
  - SYNOVITIS [None]
